FAERS Safety Report 13697374 (Version 7)
Quarter: 2018Q4

REPORT INFORMATION
  Report Type: Spontaneous
  Country: PE (occurrence: PE)
  Receive Date: 20170628
  Receipt Date: 20181005
  Transmission Date: 20190204
  Serious: Yes (Other)
  Sender: FDA-Public Use
  Company Number: PE-SA-2017SA114564

PATIENT
  Age: 24 Year
  Sex: Female
  Weight: 45 kg

DRUGS (2)
  1. CEREZYME [Suspect]
     Active Substance: IMIGLUCERASE
     Indication: GAUCHER^S DISEASE
     Dosage: 60 DF,QOW
     Route: 041
     Dates: start: 19991117, end: 201709
  2. CEREZYME [Suspect]
     Active Substance: IMIGLUCERASE
     Dosage: 60 DF,QOW
     Route: 041
     Dates: start: 20180113

REACTIONS (6)
  - Bone disorder [Not Recovered/Not Resolved]
  - Bone infarction [Not Recovered/Not Resolved]
  - Treatment noncompliance [Unknown]
  - Pain in extremity [Not Recovered/Not Resolved]
  - Bone marrow infiltration [Not Recovered/Not Resolved]
  - Osteonecrosis [Not Recovered/Not Resolved]

NARRATIVE: CASE EVENT DATE: 2015
